FAERS Safety Report 16359830 (Version 1)
Quarter: 2019Q2

REPORT INFORMATION
  Report Type: Spontaneous
  Country: US (occurrence: US)
  Receive Date: 20190419
  Receipt Date: 20190419
  Transmission Date: 20190711
  Serious: No
  Sender: FDA-Public Use
  Company Number: None

PATIENT
  Age: 46 Year
  Sex: Female
  Weight: 62.6 kg

DRUGS (3)
  1. METHOTREXATE  50MG/2ML  MDV, [Suspect]
     Active Substance: METHOTREXATE
     Indication: RHEUMATOID ARTHRITIS
     Dosage: ?          OTHER DOSE:20MG (0.8ML) ;?
     Route: 058
     Dates: start: 201812
  2. METHOTREXATE  50MG/2ML  MDV, [Suspect]
     Active Substance: METHOTREXATE
     Indication: NECK PAIN
  3. METHOTREXATE  50MG/2ML  MDV, [Suspect]
     Active Substance: METHOTREXATE
     Indication: FIBROMYALGIA

REACTIONS (2)
  - Neurectomy [None]
  - Therapy cessation [None]
